FAERS Safety Report 17516706 (Version 1)
Quarter: 2020Q1

REPORT INFORMATION
  Report Type: Spontaneous
  Country: IN (occurrence: IN)
  Receive Date: 20200309
  Receipt Date: 20200309
  Transmission Date: 20200409
  Serious: Yes (Congenital Anomaly)
  Sender: FDA-Public Use
  Company Number: NVSC2020IN064812

PATIENT
  Sex: Male
  Weight: 2.69 kg

DRUGS (3)
  1. PREDNISOLONE. [Suspect]
     Active Substance: PREDNISOLONE
     Indication: FOETAL EXPOSURE DURING PREGNANCY
     Dosage: MATERNAL DOSE:UNK, 6 CYCLES
     Route: 064
  2. VINBLASTINE [Suspect]
     Active Substance: VINBLASTINE
     Indication: FOETAL EXPOSURE DURING PREGNANCY
     Dosage: MATERNAL DOSE:10 MG, 6 CYCLES
     Route: 064
  3. CYCLOPHOSPHAMIDE. [Suspect]
     Active Substance: CYCLOPHOSPHAMIDE
     Indication: FOETAL EXPOSURE DURING PREGNANCY
     Dosage: MATERNAL DOSE:UNK, 6 CYCLES
     Route: 064

REACTIONS (3)
  - Ureteric obstruction [Unknown]
  - Anal atresia [Unknown]
  - Atrial septal defect [Unknown]
